FAERS Safety Report 7350347-4 (Version None)
Quarter: 2011Q1

REPORT INFORMATION
  Report Type: 
  Country: None (occurrence: None)
  Receive Date: 20110314
  Receipt Date: 20110304
  Transmission Date: 20110831
  Serious: Yes (Hospitalization)
  Sender: FDA-Public Use
  Company Number: BR-ASTRAZENECA-2011SE12249

PATIENT
  Age: 80 Year
  Sex: Female
  Weight: 80 kg

DRUGS (9)
  1. SELOZOK [Suspect]
     Indication: ARRHYTHMIA
     Route: 048
     Dates: start: 20110201, end: 20110301
  2. LASIX [Suspect]
     Route: 048
     Dates: start: 20110201, end: 20110301
  3. SPIRONOLACTONE [Concomitant]
  4. ATACAND [Suspect]
     Indication: HYPERTENSION
     Route: 048
     Dates: start: 20060101, end: 20101231
  5. LIPITOR [Suspect]
     Route: 048
     Dates: start: 20110201, end: 20110301
  6. NATRILIX [Suspect]
     Route: 048
     Dates: start: 20060101, end: 20110301
  7. AMLODIPINE [Concomitant]
     Route: 048
     Dates: start: 20060101, end: 20110301
  8. CONCOR [Concomitant]
  9. SPIRONOLACTONE [Concomitant]

REACTIONS (5)
  - ARRHYTHMIA [None]
  - ASTHENIA [None]
  - HEADACHE [None]
  - FATIGUE [None]
  - MYALGIA [None]
